FAERS Safety Report 6671791-4 (Version None)
Quarter: 2010Q2

REPORT INFORMATION
  Report Type: 
  Country: None (occurrence: None)
  Receive Date: 20100406
  Receipt Date: 20100406
  Transmission Date: 20101027
  Serious: Yes (Other)
  Sender: FDA-Public Use
  Company Number: None

PATIENT
  Age: 62 Year
  Sex: Female
  Weight: 110.2241 kg

DRUGS (3)
  1. CRESTOR [Suspect]
     Indication: BLOOD CHOLESTEROL INCREASED
     Dosage: 10 MG - 1 TABLET HS  PO
     Route: 048
     Dates: start: 20050101, end: 20091130
  2. OSMOPREP [Suspect]
     Indication: COLONOSCOPY
     Dosage: PO
     Route: 048
     Dates: start: 20100307, end: 20100307
  3. OSMOPREP [Suspect]
     Indication: PREOPERATIVE CARE
     Dosage: PO
     Route: 048
     Dates: start: 20100307, end: 20100307

REACTIONS (5)
  - CHEST DISCOMFORT [None]
  - CHROMATURIA [None]
  - DYSPNOEA [None]
  - INSOMNIA [None]
  - NAUSEA [None]
